FAERS Safety Report 9387535 (Version 1)
Quarter: 2013Q3

REPORT INFORMATION
  Report Type: Spontaneous
  Country: IN (occurrence: IN)
  Receive Date: 20130708
  Receipt Date: 20130708
  Transmission Date: 20140515
  Serious: Yes (Death)
  Sender: FDA-Public Use
  Company Number: IN-PFIZER INC-2013199636

PATIENT
  Age: 71 Year
  Sex: Male

DRUGS (1)
  1. CAMPTO [Suspect]

REACTIONS (1)
  - Death [Fatal]
